FAERS Safety Report 7310037-0 (Version None)
Quarter: 2011Q1

REPORT INFORMATION
  Report Type: 
  Country: None (occurrence: None)
  Receive Date: 20110224
  Receipt Date: 20110214
  Transmission Date: 20110831
  Serious: Yes (Other)
  Sender: FDA-Public Use
  Company Number: PHHY2011CA03081

PATIENT
  Sex: Female

DRUGS (3)
  1. ACLASTA/ZOLEDRONATE [Suspect]
     Indication: OSTEOPOROSIS
     Dosage: 5 MG/100ML
     Route: 042
     Dates: start: 20090623
  2. CALCIUM [Concomitant]
     Dosage: 1000 MG DIE
  3. VITAMIN D [Concomitant]
     Dosage: UNK
     Dates: start: 20090106

REACTIONS (2)
  - FEMUR FRACTURE [None]
  - FALL [None]
